FAERS Safety Report 5756279-7 (Version None)
Quarter: 2008Q2

REPORT INFORMATION
  Report Type: 
  Country: None (occurrence: None)
  Receive Date: 20080603
  Receipt Date: 20080602
  Transmission Date: 20081010
  Serious: Yes (Hospitalization)
  Sender: FDA-Public Use
  Company Number: DE-SP-2008-01835

PATIENT
  Sex: Male

DRUGS (1)
  1. IMMUCYST [Suspect]
     Dosage: NOT REPORTED
     Route: 065

REACTIONS (1)
  - TUBERCULOSIS [None]
